FAERS Safety Report 19242151 (Version 1)
Quarter: 2021Q2

REPORT INFORMATION
  Report Type: Spontaneous
  Country: US (occurrence: US)
  Receive Date: 20210511
  Receipt Date: 20210511
  Transmission Date: 20210717
  Serious: Yes (Death, Hospitalization, Other)
  Sender: FDA-Public Use
  Company Number: US-AMGEN-USASP2021069921

PATIENT
  Age: 59 Year
  Sex: Female

DRUGS (1)
  1. BEVACIZUMAB. [Suspect]
     Active Substance: BEVACIZUMAB
     Indication: GLIOBLASTOMA MULTIFORME
     Dosage: 10 MILLIGRAM/KILOGRAM, Q2WK
     Route: 042

REACTIONS (5)
  - Death [Fatal]
  - Seizure [Unknown]
  - Large intestine perforation [Unknown]
  - Blood bicarbonate decreased [Unknown]
  - Troponin I increased [Unknown]
